FAERS Safety Report 5949945-1 (Version None)
Quarter: 2008Q4

REPORT INFORMATION
  Report Type: 
  Country: None (occurrence: None)
  Receive Date: 20081112
  Receipt Date: 20081030
  Transmission Date: 20090506
  Serious: Yes (Hospitalization)
  Sender: FDA-Public Use
  Company Number: US-ELI_LILLY_AND_COMPANY-US200810007539

PATIENT
  Age: 34 Year
  Sex: Male

DRUGS (1)
  1. CYMBALTA [Suspect]
     Indication: BACK PAIN

REACTIONS (1)
  - HYPERTENSION [None]
